FAERS Safety Report 6375899-2 (Version None)
Quarter: 2009Q3

REPORT INFORMATION
  Report Type: 
  Country: None (occurrence: None)
  Receive Date: 20090924
  Receipt Date: 20090916
  Transmission Date: 20100115
  Serious: Yes (Hospitalization)
  Sender: FDA-Public Use
  Company Number: FR-AMGEN-US365797

PATIENT
  Age: 56 Year
  Sex: Female

DRUGS (8)
  1. ENBREL [Suspect]
     Indication: ANKYLOSING SPONDYLITIS
     Route: 058
     Dates: start: 20031001
  2. NOVATREX [Suspect]
     Indication: ANKYLOSING SPONDYLITIS
     Route: 048
     Dates: end: 20040121
  3. CEFTRIAXONE [Suspect]
     Route: 065
     Dates: start: 20040201
  4. INDOCIN [Concomitant]
     Dosage: 300 TO 450 MG TOTAL DAILY
     Route: 048
  5. BI-PROFENID [Concomitant]
     Dosage: UNKNOWN
     Route: 065
     Dates: start: 20040401
  6. SECTRAL [Concomitant]
     Route: 048
  7. CITALOPRAM HYDROBROMIDE [Concomitant]
     Route: 048
  8. SPECIAFOLDINE [Concomitant]
     Route: 048

REACTIONS (6)
  - CSF WHITE BLOOD CELL COUNT INCREASED [None]
  - MENINGISM [None]
  - MENINGITIS MENINGOCOCCAL [None]
  - PAROTITIS [None]
  - PRURITUS GENERALISED [None]
  - PSORIASIS [None]
